FAERS Safety Report 7210534-2 (Version None)
Quarter: 2011Q1

REPORT INFORMATION
  Report Type: 
  Country: None (occurrence: None)
  Receive Date: 20110105
  Receipt Date: 20101228
  Transmission Date: 20110831
  Serious: Yes (Other)
  Sender: FDA-Public Use
  Company Number: CA-ROCHE-750925

PATIENT
  Sex: Female
  Weight: 61.7 kg

DRUGS (2)
  1. BEVACIZUMAB [Suspect]
     Indication: COLORECTAL CANCER
     Route: 042
     Dates: start: 20100819
  2. LORAZEPAM [Concomitant]

REACTIONS (2)
  - EPISTAXIS [None]
  - ASCITES [None]
